FAERS Safety Report 6739815-3 (Version None)
Quarter: 2010Q2

REPORT INFORMATION
  Report Type: 
  Country: None (occurrence: None)
  Receive Date: 20100525
  Receipt Date: 20100517
  Transmission Date: 20101027
  Serious: Yes (Death)
  Sender: FDA-Public Use
  Company Number: FR-GENZYME-FABR-1001390

PATIENT
  Sex: Male
  Weight: 42 kg

DRUGS (2)
  1. FABRAZYME [Suspect]
     Indication: FABRY'S DISEASE
     Dosage: UNK
     Route: 042
     Dates: start: 20100101
  2. FABRAZYME [Suspect]
     Dosage: UNK
     Route: 042
     Dates: start: 20071001

REACTIONS (2)
  - MYOCARDIAL INFARCTION [None]
  - RENAL IMPAIRMENT [None]
